FAERS Safety Report 7581997-8 (Version None)
Quarter: 2011Q2

REPORT INFORMATION
  Report Type: 
  Country: None (occurrence: None)
  Receive Date: 20110630
  Receipt Date: 20110621
  Transmission Date: 20111010
  Serious: Yes (Hospitalization)
  Sender: FDA-Public Use
  Company Number: US-BIOGENIDEC-2011BI023053

PATIENT
  Age: 34 Year
  Sex: Female

DRUGS (2)
  1. AVONEX [Suspect]
     Route: 030
  2. AVONEX [Suspect]
     Indication: MULTIPLE SCLEROSIS
     Route: 030
     Dates: start: 20110301

REACTIONS (2)
  - RECTAL PROLAPSE REPAIR [None]
  - HYSTERECTOMY [None]
